FAERS Safety Report 25185678 (Version 1)
Quarter: 2025Q2

REPORT INFORMATION
  Report Type: Spontaneous
  Country: US (occurrence: US)
  Receive Date: 20250410
  Receipt Date: 20250410
  Transmission Date: 20250716
  Serious: Yes (Other)
  Sender: CENTRAL ADMIXTURE PHARMACY SERVICES, INC.
  Company Number: US-Central Admixture Pharmacy Services, Inc.-2174614

PATIENT

DRUGS (1)
  1. AMINO ACIDS\CALCIUM GLUCONATE MONOHYDRATE\DEXTROSE MONOHYDRATE\HEPARIN [Suspect]
     Active Substance: AMINO ACIDS\CALCIUM GLUCONATE MONOHYDRATE\DEXTROSE MONOHYDRATE\HEPARIN SODIUM
     Indication: Parenteral nutrition
     Dates: start: 20250327, end: 20250327

REACTIONS (1)
  - Hyperglycaemia [Unknown]

NARRATIVE: CASE EVENT DATE: 20250327
